FAERS Safety Report 5513300-9 (Version None)
Quarter: 2007Q4

REPORT INFORMATION
  Report Type: 
  Country: None (occurrence: None)
  Receive Date: 20071108
  Receipt Date: 20071102
  Transmission Date: 20080405
  Serious: Yes (Hospitalization)
  Sender: FDA-Public Use
  Company Number: 200710AGG00738

PATIENT
  Age: 70 Year
  Sex: Female

DRUGS (5)
  1. TIROFIBAN HYDROCHLORIDE (TIROFIBAN HCL) (7.5 ML, 14 ML) [Suspect]
     Indication: ACUTE MYOCARDIAL INFARCTION
     Dosage: (7.5 MG TOTAL INTRAVENOUS BOLUS), (INTRAVENOUS DRIP)
     Route: 040
     Dates: start: 20071014, end: 20071014
  2. TIROFIBAN HYDROCHLORIDE (TIROFIBAN HCL) (7.5 ML, 14 ML) [Suspect]
     Indication: ACUTE MYOCARDIAL INFARCTION
     Dosage: (7.5 MG TOTAL INTRAVENOUS BOLUS), (INTRAVENOUS DRIP)
     Route: 040
     Dates: start: 20071014, end: 20071014
  3. ASPIRIN [Concomitant]
  4. MOXIFLOXACIN HYDROCHLORIDE [Concomitant]
  5. DIURETICS [Concomitant]

REACTIONS (1)
  - ACUTE CORONARY SYNDROME [None]
